FAERS Safety Report 8461494-8 (Version None)
Quarter: 2012Q2

REPORT INFORMATION
  Report Type: 
  Country: None (occurrence: None)
  Receive Date: 20120619
  Receipt Date: 20120619
  Transmission Date: 20120825
  Serious: No
  Sender: FDA-Public Use
  Company Number: None

PATIENT
  Sex: Female
  Weight: 70.3075 kg

DRUGS (1)
  1. VENLAFAXINE HCL EXTENDED-RELEASE [Suspect]
     Indication: HOT FLUSH
     Dosage: 150 MG DAILY ORAL
     Route: 048
     Dates: start: 20120402

REACTIONS (2)
  - PRODUCT SUBSTITUTION ISSUE [None]
  - HOT FLUSH [None]
